FAERS Safety Report 24004805 (Version 1)
Quarter: 2024Q2

REPORT INFORMATION
  Report Type: Spontaneous
  Country: US (occurrence: None)
  Receive Date: 20240621
  Receipt Date: 20240621
  Transmission Date: 20240715
  Serious: Yes (Hospitalization)
  Sender: FDA-Public Use
  Company Number: None

PATIENT
  Age: 71 Year
  Sex: Male

DRUGS (2)
  1. ERTAPENEM. [Suspect]
     Active Substance: ERTAPENEM SODIUM
     Indication: Osteomyelitis
     Dosage: OTHER FREQUENCY : OTHER;?
     Route: 042
     Dates: start: 20240119, end: 20240229
  2. VANCOMYCIN [Suspect]
     Active Substance: VANCOMYCIN

REACTIONS (3)
  - Seizure [None]
  - Mental status changes [None]
  - Dialysis [None]

NARRATIVE: CASE EVENT DATE: 20240229
